FAERS Safety Report 19580714 (Version 2)
Quarter: 2021Q3

REPORT INFORMATION
  Report Type: Spontaneous
  Country: JP (occurrence: JP)
  Receive Date: 20210719
  Receipt Date: 20210803
  Transmission Date: 20211014
  Serious: Yes (Other)
  Sender: FDA-Public Use
  Company Number: JP-FERRINGPH-2021FE04476

PATIENT
  Age: 15 Year
  Sex: Female

DRUGS (2)
  1. TRESIBA [Concomitant]
     Active Substance: INSULIN DEGLUDEC
     Route: 065
  2. MINIRINMELT [Suspect]
     Active Substance: DESMOPRESSIN ACETATE
     Indication: DIABETES INSIPIDUS
     Dosage: 60 UG, 3 TIMES DAILY
     Route: 065
     Dates: start: 20210625

REACTIONS (5)
  - Eye operation [Unknown]
  - Eye pain [Recovering/Resolving]
  - Eye swelling [Recovering/Resolving]
  - Off label use [Unknown]
  - Contraindicated product prescribed [Unknown]

NARRATIVE: CASE EVENT DATE: 20210625
